FAERS Safety Report 14317672 (Version 6)
Quarter: 2019Q3

REPORT INFORMATION
  Report Type: Report from Study
  Country: US (occurrence: US)
  Receive Date: 20171222
  Receipt Date: 20190809
  Transmission Date: 20191004
  Serious: Yes (Hospitalization, Other)
  Sender: FDA-Public Use
  Company Number: US-TESARO, INC.-US-2017TSO04532

PATIENT
  Age: 50 Year
  Sex: Female

DRUGS (19)
  1. ZEJULA [Suspect]
     Active Substance: NIRAPARIB
     Dosage: 100 MG, QD
     Route: 048
  2. KEYTRUDA [Concomitant]
     Active Substance: PEMBROLIZUMAB
     Indication: PRODUCT USED FOR UNKNOWN INDICATION
     Dosage: UNK
  3. ATIVAN [Concomitant]
     Active Substance: LORAZEPAM
     Indication: ANXIETY
     Dosage: 0.5 MG, PRN
     Route: 048
  4. ZEJULA [Suspect]
     Active Substance: NIRAPARIB
     Indication: OVARIAN CANCER
     Dosage: 300 MG, QD
     Route: 048
  5. LEVAQUIN [Suspect]
     Active Substance: LEVOFLOXACIN
     Indication: WHITE BLOOD CELLS URINE POSITIVE
  6. LANTUS [Concomitant]
     Active Substance: INSULIN GLARGINE
     Dosage: 104 IU, HS
     Route: 058
  7. FLAGYL [Concomitant]
     Active Substance: METRONIDAZOLE\METRONIDAZOLE HYDROCHLORIDE
     Indication: PRODUCT USED FOR UNKNOWN INDICATION
     Dosage: 500 MG, TID
     Route: 048
     Dates: start: 20171223, end: 20180416
  8. GLUCOPHAGE [Concomitant]
     Active Substance: METFORMIN HYDROCHLORIDE
     Indication: PRODUCT USED FOR UNKNOWN INDICATION
     Dosage: 1000 MG, BID
     Route: 048
  9. TRADJENTA [Concomitant]
     Active Substance: LINAGLIPTIN
     Indication: PRODUCT USED FOR UNKNOWN INDICATION
     Dosage: 5 MG, QD
     Route: 048
  10. ZEJULA [Suspect]
     Active Substance: NIRAPARIB
     Dosage: 200 MG, QD
     Route: 048
  11. ZETIA [Concomitant]
     Active Substance: EZETIMIBE
     Indication: PRODUCT USED FOR UNKNOWN INDICATION
     Dosage: 10 MG, QD
     Route: 048
  12. LANTUS [Concomitant]
     Active Substance: INSULIN GLARGINE
     Indication: PRODUCT USED FOR UNKNOWN INDICATION
     Dosage: 30 IU, QD
     Route: 058
  13. WELLBUTRIN [Concomitant]
     Active Substance: BUPROPION HYDROCHLORIDE
     Indication: PRODUCT USED FOR UNKNOWN INDICATION
     Dosage: 150 MG, QD
     Route: 048
  14. LEVAQUIN [Suspect]
     Active Substance: LEVOFLOXACIN
     Indication: DYSURIA
     Dosage: 750 MG, QD
     Route: 048
     Dates: start: 20180423
  15. CELEXA [Concomitant]
     Active Substance: CITALOPRAM HYDROBROMIDE
     Indication: PRODUCT USED FOR UNKNOWN INDICATION
     Dosage: 40 MG, QD
     Route: 048
  16. AVAPRO [Concomitant]
     Active Substance: IRBESARTAN
     Indication: PRODUCT USED FOR UNKNOWN INDICATION
     Dosage: 75 MG, QD
     Route: 048
  17. NEURONTIN [Concomitant]
     Active Substance: GABAPENTIN
     Indication: PRODUCT USED FOR UNKNOWN INDICATION
     Dosage: 900 MG, UNK
  18. MAGNESIUM [Concomitant]
     Active Substance: MAGNESIUM
     Indication: PRODUCT USED FOR UNKNOWN INDICATION
     Dosage: UNK
  19. LOFIBRA [Concomitant]
     Active Substance: FENOFIBRATE
     Indication: PRODUCT USED FOR UNKNOWN INDICATION
     Dosage: 160 MG, QD
     Route: 048

REACTIONS (39)
  - Urinary tract infection [Unknown]
  - pH urine increased [Unknown]
  - Blood glucose increased [Unknown]
  - Fall [Unknown]
  - Foot fracture [Unknown]
  - Dry mouth [Unknown]
  - Lymphocyte count decreased [Unknown]
  - Laboratory test abnormal [Unknown]
  - Dysuria [Unknown]
  - Discomfort [Unknown]
  - Haematuria [Unknown]
  - Hyperhidrosis [Unknown]
  - Ligament sprain [Unknown]
  - Haemoglobin decreased [Unknown]
  - Vomiting [Unknown]
  - Fatigue [Unknown]
  - Sepsis [Unknown]
  - Pollakiuria [Unknown]
  - Granulocyte count increased [Unknown]
  - Monocyte count decreased [Unknown]
  - Oropharyngeal pain [Unknown]
  - Glucose urine present [Unknown]
  - Blood creatinine increased [Unknown]
  - Pyrexia [Recovered/Resolved]
  - White blood cells urine positive [Recovered/Resolved]
  - Micturition urgency [Unknown]
  - Pain [Unknown]
  - Chills [Unknown]
  - International normalised ratio increased [Unknown]
  - Malaise [Unknown]
  - Blood urea increased [Unknown]
  - Red blood cells urine positive [Unknown]
  - Blood albumin decreased [Unknown]
  - Mean cell haemoglobin concentration decreased [Unknown]
  - Flank pain [Unknown]
  - Feeling abnormal [Unknown]
  - Drug hypersensitivity [Unknown]
  - Red blood cell count decreased [Unknown]
  - Cough [Unknown]

NARRATIVE: CASE EVENT DATE: 20181210
